FAERS Safety Report 6127326-8 (Version None)
Quarter: 2009Q1

REPORT INFORMATION
  Report Type: 
  Country: None (occurrence: None)
  Receive Date: 20090319
  Receipt Date: 20090311
  Transmission Date: 20090719
  Serious: Yes (Hospitalization)
  Sender: FDA-Public Use
  Company Number: 2009SP005389

PATIENT
  Age: 57 Year
  Sex: Male
  Weight: 86 kg

DRUGS (2)
  1. TEMOZOLOMIDE [Suspect]
     Indication: GLIOBLASTOMA MULTIFORME
     Dosage: 100 MG/M2, 100 MG/M2
     Dates: start: 20090221, end: 20090303
  2. TEMOZOLOMIDE [Suspect]
     Indication: GLIOBLASTOMA MULTIFORME
     Dosage: 100 MG/M2, 100 MG/M2
     Dates: start: 20080316

REACTIONS (7)
  - ABDOMINAL PAIN [None]
  - HAEMOLYTIC ANAEMIA [None]
  - JAUNDICE [None]
  - NAUSEA [None]
  - URINARY INCONTINENCE [None]
  - VISION BLURRED [None]
  - VOMITING [None]
